FAERS Safety Report 21452433 (Version 1)
Quarter: 2022Q4

REPORT INFORMATION
  Report Type: Other
  Country: US (occurrence: None)
  Receive Date: 20221013
  Receipt Date: 20221013
  Transmission Date: 20230113
  Serious: Yes (Hospitalization)
  Sender: FDA-Public Use
  Company Number: US-ROCHE-3193805

PATIENT
  Age: 54 Year
  Sex: Female
  Weight: 68.100 kg

DRUGS (14)
  1. OCREVUS [Suspect]
     Active Substance: OCRELIZUMAB
     Indication: Primary progressive multiple sclerosis
     Dosage: YES
     Route: 042
     Dates: start: 202012
  2. OCREVUS [Suspect]
     Active Substance: OCRELIZUMAB
     Indication: Multiple sclerosis
     Route: 042
  3. ERGOCALCIFEROL [Concomitant]
     Active Substance: ERGOCALCIFEROL
  4. HYDROXYZINE [Concomitant]
     Active Substance: HYDROXYZINE HYDROCHLORIDE
  5. OMEPRAZOLE [Concomitant]
     Active Substance: OMEPRAZOLE
  6. SIMVASTATIN [Concomitant]
     Active Substance: SIMVASTATIN
  7. DICLOFENAC SODIUM [Concomitant]
     Active Substance: DICLOFENAC SODIUM
  8. BACLOFEN [Concomitant]
     Active Substance: BACLOFEN
  9. VITAMIN C [Concomitant]
     Active Substance: ASCORBIC ACID
  10. SEROQUEL [Concomitant]
     Active Substance: QUETIAPINE FUMARATE
  11. ATIVAN [Concomitant]
     Active Substance: LORAZEPAM
  12. AMBIEN [Concomitant]
     Active Substance: ZOLPIDEM TARTRATE
  13. MORPHINE SULFATE [Concomitant]
     Active Substance: MORPHINE SULFATE
  14. FISH OIL [Concomitant]
     Active Substance: FISH OIL

REACTIONS (5)
  - Cholelithiasis [Recovered/Resolved]
  - Nephrolithiasis [Recovered/Resolved]
  - Vomiting [Not Recovered/Not Resolved]
  - Nausea [Not Recovered/Not Resolved]
  - Renal disorder [Not Recovered/Not Resolved]

NARRATIVE: CASE EVENT DATE: 20210101
